FAERS Safety Report 12430838 (Version 2)
Quarter: 2017Q1

REPORT INFORMATION
  Report Type: Spontaneous
  Country: US (occurrence: US)
  Receive Date: 20160602
  Receipt Date: 20170308
  Transmission Date: 20170428
  Serious: Yes (Other)
  Sender: FDA-Public Use
  Company Number: US-TEVA-663235USA

PATIENT
  Age: 56 Year
  Sex: Female

DRUGS (9)
  1. AMLODIPINE [Concomitant]
     Active Substance: AMLODIPINE BESYLATE
  2. COPAXONE [Suspect]
     Active Substance: GLATIRAMER ACETATE
     Indication: MULTIPLE SCLEROSIS
     Route: 058
     Dates: start: 20140926
  3. GLIMEPIRIDE. [Concomitant]
     Active Substance: GLIMEPIRIDE
  4. MELOXICAM. [Concomitant]
     Active Substance: MELOXICAM
  5. ATENOLOL. [Concomitant]
     Active Substance: ATENOLOL
  6. SIMVASTATIN. [Concomitant]
     Active Substance: SIMVASTATIN
  7. IMIPRAMINE [Concomitant]
     Active Substance: IMIPRAMINE
  8. ASA [Concomitant]
     Active Substance: ASPIRIN
  9. LISINOPRIL. [Concomitant]
     Active Substance: LISINOPRIL

REACTIONS (2)
  - Multiple sclerosis relapse [Unknown]
  - Drug ineffective [Unknown]

NARRATIVE: CASE EVENT DATE: 201605
